FAERS Safety Report 8118303-6 (Version None)
Quarter: 2012Q1

REPORT INFORMATION
  Report Type: 
  Country: None (occurrence: None)
  Receive Date: 20120207
  Receipt Date: 20120130
  Transmission Date: 20120608
  Serious: Yes (Congenital Anomaly, Other)
  Sender: FDA-Public Use
  Company Number: US-JNJFOC-20120112015

PATIENT
  Sex: Male

DRUGS (5)
  1. TOPAMAX [Suspect]
     Indication: FOETAL EXPOSURE DURING PREGNANCY
     Route: 064
  2. AVONEX [Suspect]
     Indication: FOETAL EXPOSURE DURING PREGNANCY
     Route: 064
  3. PROVIGIL [Suspect]
     Indication: FOETAL EXPOSURE DURING PREGNANCY
     Route: 064
  4. CELEXA [Suspect]
     Indication: FOETAL EXPOSURE DURING PREGNANCY
     Route: 064
  5. WELLBUTRIN XL [Suspect]
     Indication: FOETAL EXPOSURE DURING PREGNANCY
     Route: 064

REACTIONS (9)
  - CLEFT LIP [None]
  - MYOPIA [None]
  - CLEFT PALATE [None]
  - OTITIS MEDIA CHRONIC [None]
  - DEPRESSION [None]
  - STRESS [None]
  - ATTENTION DEFICIT/HYPERACTIVITY DISORDER [None]
  - VENTRICULAR SEPTAL DEFECT [None]
  - VITREOUS DEGENERATION [None]
